FAERS Safety Report 9500919 (Version 2)
Quarter: 2013Q3

REPORT INFORMATION
  Report Type: Spontaneous
  Country: JP (occurrence: JP)
  Receive Date: 20130905
  Receipt Date: 20130905
  Transmission Date: 20140515
  Serious: Yes (Hospitalization, Other)
  Sender: FDA-Public Use
  Company Number: PHHY2013JP071592

PATIENT
  Age: 65 Year
  Sex: 0

DRUGS (2)
  1. AREDIA [Suspect]
     Indication: METASTASES TO BONE
     Dosage: UNK UKN, UNK
     Route: 041
     Dates: start: 20041215, end: 20061220
  2. ZOMETA [Suspect]
     Indication: METASTASES TO BONE
     Dosage: UNK UKN, UNK
     Route: 041
     Dates: start: 20070115, end: 20130110

REACTIONS (4)
  - Fall [Unknown]
  - Atypical femur fracture [Recovered/Resolved]
  - Metastases to bone [Unknown]
  - Neuralgia [Unknown]
